FAERS Safety Report 7922769-1 (Version None)
Quarter: 2011Q4

REPORT INFORMATION
  Report Type: 
  Country: None (occurrence: None)
  Receive Date: 20111117
  Receipt Date: 20110919
  Transmission Date: 20120403
  Serious: No
  Sender: FDA-Public Use
  Company Number: US-ALLERGAN-1112442US

PATIENT
  Age: 68 Year
  Sex: Male

DRUGS (4)
  1. AZOPT [Concomitant]
  2. XALATAN [Concomitant]
  3. COMBIGAN [Suspect]
     Indication: INTRAOCULAR PRESSURE INCREASED
     Dosage: 2 GTT, BID
     Route: 047
     Dates: end: 20110801
  4. TIMOLOL MALEATE [Concomitant]

REACTIONS (4)
  - EYELID EXFOLIATION [None]
  - DRUG HYPERSENSITIVITY [None]
  - EYE IRRITATION [None]
  - EYELID IRRITATION [None]
